FAERS Safety Report 21877213 (Version 1)
Quarter: 2023Q1

REPORT INFORMATION
  Report Type: Spontaneous
  Country: US (occurrence: None)
  Receive Date: 20230116
  Receipt Date: 20230116
  Transmission Date: 20230417
  Serious: No
  Sender: FDA-Public Use
  Company Number: None

PATIENT
  Age: 81 Year
  Sex: Female
  Weight: 83.91 kg

DRUGS (13)
  1. SPRYCEL [Suspect]
     Active Substance: DASATINIB
     Indication: Chronic myeloid leukaemia
     Dosage: 140MG ONCE DAILY ORAL?
     Route: 048
  2. BYDUREON BCISE [Concomitant]
  3. CLOPIDOGREL [Concomitant]
  4. FARXIGA [Concomitant]
  5. FLUTICASONE [Concomitant]
  6. VITAMIN B12 [Concomitant]
  7. HUMALOG [Concomitant]
  8. HYDROXYUREA [Concomitant]
  9. METOPROLOL [Concomitant]
  10. MONTELUKAST [Concomitant]
  11. MULTIVITAMIN [Concomitant]
  12. PREDNISOLONE [Concomitant]
  13. ROSUVASTATIN [Concomitant]

REACTIONS (1)
  - Full blood count decreased [None]
